FAERS Safety Report 6778951-2 (Version None)
Quarter: 2010Q2

REPORT INFORMATION
  Report Type: 
  Country: None (occurrence: None)
  Receive Date: 20100618
  Receipt Date: 20100609
  Transmission Date: 20101027
  Serious: Yes (Disabling)
  Sender: FDA-Public Use
  Company Number: FR-KINGPHARMUSA00001-K201000733

PATIENT
  Age: 52 Year
  Sex: Female

DRUGS (7)
  1. ALTACE [Suspect]
     Dosage: 7.5 MG, QD
     Route: 048
     Dates: start: 20070101
  2. GASTROZEPIN [Concomitant]
  3. AMITRIPTYLINE [Concomitant]
     Dosage: UNK
     Dates: start: 20070101
  4. RESTEX [Concomitant]
     Dosage: UNK
     Dates: start: 20070101
  5. TILIDINE [Concomitant]
  6. BISOPROLOL [Concomitant]
     Dosage: UNK
     Dates: start: 20070101
  7. FEMARA [Concomitant]
     Dosage: UNK
     Dates: start: 20050101

REACTIONS (3)
  - DYSGEUSIA [None]
  - MUCOSAL DRYNESS [None]
  - ORAL DISCOMFORT [None]
